FAERS Safety Report 17608049 (Version 1)
Quarter: 2020Q1

REPORT INFORMATION
  Report Type: Spontaneous
  Country: CA (occurrence: CA)
  Receive Date: 20200331
  Receipt Date: 20200331
  Transmission Date: 20200409
  Serious: Yes (Other)
  Sender: FDA-Public Use
  Company Number: CA-ASCEND THERAPEUTICS US, LLC-2082168

PATIENT
  Sex: Female

DRUGS (3)
  1. PROMETRIUM [Suspect]
     Active Substance: PROGESTERONE
     Route: 048
  2. ESTRADIOL. [Suspect]
     Active Substance: ESTRADIOL
     Route: 062
  3. ESTROGEL [Suspect]
     Active Substance: ESTRADIOL
     Indication: DEPRESSION
     Route: 062

REACTIONS (4)
  - Deep vein thrombosis [Unknown]
  - Off label use [None]
  - Product use issue [None]
  - Product use in unapproved indication [None]
